FAERS Safety Report 20372540 (Version 1)
Quarter: 2022Q1

REPORT INFORMATION
  Report Type: Spontaneous
  Country: US (occurrence: US)
  Receive Date: 20220125
  Receipt Date: 20220125
  Transmission Date: 20220423
  Serious: No
  Sender: FDA-Public Use
  Company Number: US-BIOVITRUM-2022US00741

PATIENT
  Sex: Male
  Weight: 10 kg

DRUGS (1)
  1. SYNAGIS [Suspect]
     Active Substance: PALIVIZUMAB
     Indication: Premature baby
     Dosage: SYNAGIS 100MG/1ML VL LIQUID
     Route: 030

REACTIONS (3)
  - SARS-CoV-2 test positive [Unknown]
  - Appetite disorder [Unknown]
  - Pyrexia [Unknown]
